FAERS Safety Report 5390064-3 (Version None)
Quarter: 2007Q3

REPORT INFORMATION
  Report Type: 
  Country: None (occurrence: None)
  Receive Date: 20070718
  Receipt Date: 20070717
  Transmission Date: 20080115
  Serious: Yes (Other)
  Sender: FDA-Public Use
  Company Number: A0664200A

PATIENT
  Age: 55 Year
  Sex: Male

DRUGS (2)
  1. ALLI [Suspect]
     Route: 048
     Dates: start: 20070629, end: 20070714
  2. GERITOL [Concomitant]

REACTIONS (3)
  - FEAR [None]
  - PHARMACEUTICAL PRODUCT COMPLAINT [None]
  - RECTAL HAEMORRHAGE [None]
